FAERS Safety Report 8610540-7 (Version None)
Quarter: 2012Q3

REPORT INFORMATION
  Report Type: 
  Country: None (occurrence: None)
  Receive Date: 20120822
  Receipt Date: 20120814
  Transmission Date: 20120928
  Serious: Yes (Hospitalization, Other)
  Sender: FDA-Public Use
  Company Number: US-JNJFOC-20120807522

PATIENT
  Age: 81 Year
  Sex: Female

DRUGS (3)
  1. XARELTO [Suspect]
     Indication: THROMBOSIS PROPHYLAXIS
     Route: 048
     Dates: start: 20120731, end: 20120731
  2. XARELTO [Suspect]
     Indication: HIP FRACTURE
     Route: 048
     Dates: start: 20120731, end: 20120731
  3. CELEBREX [Concomitant]

REACTIONS (2)
  - RENAL FAILURE [None]
  - INCISION SITE HAEMORRHAGE [None]
